FAERS Safety Report 8493521-6 (Version None)
Quarter: 2012Q2

REPORT INFORMATION
  Report Type: 
  Country: None (occurrence: None)
  Receive Date: 20120627
  Receipt Date: 20120613
  Transmission Date: 20120825
  Serious: Yes (Death)
  Sender: FDA-Public Use
  Company Number: DSA_58056_2012

PATIENT
  Age: 91 Year
  Sex: Male

DRUGS (19)
  1. PREVISCAN /00789001/ (PREVISCAN - FLUINDIONE) (NOT SPECIFIED) [Suspect]
     Indication: ATRIAL FIBRILLATION
     Dosage: (DF ORAL), (15 MG QD ORAL), (20 MG QD ORAL), (30 MG QD ORAL), (35 MG QD ORAL)
     Route: 048
     Dates: end: 20120508
  2. PREVISCAN /00789001/ (PREVISCAN - FLUINDIONE) (NOT SPECIFIED) [Suspect]
     Indication: ATRIAL FIBRILLATION
     Dosage: (DF ORAL), (15 MG QD ORAL), (20 MG QD ORAL), (30 MG QD ORAL), (35 MG QD ORAL)
     Route: 048
     Dates: start: 20120512, end: 20120515
  3. PREVISCAN /00789001/ (PREVISCAN - FLUINDIONE) (NOT SPECIFIED) [Suspect]
     Indication: ATRIAL FIBRILLATION
     Dosage: (DF ORAL), (15 MG QD ORAL), (20 MG QD ORAL), (30 MG QD ORAL), (35 MG QD ORAL)
     Route: 048
     Dates: start: 20120516, end: 20120517
  4. PREVISCAN /00789001/ (PREVISCAN - FLUINDIONE) (NOT SPECIFIED) [Suspect]
     Indication: ATRIAL FIBRILLATION
     Dosage: (DF ORAL), (15 MG QD ORAL), (20 MG QD ORAL), (30 MG QD ORAL), (35 MG QD ORAL)
     Route: 048
     Dates: start: 20120509, end: 20120511
  5. PREVISCAN /00789001/ (PREVISCAN - FLUINDIONE) (NOT SPECIFIED) [Suspect]
     Indication: ATRIAL FIBRILLATION
     Dosage: (DF ORAL), (15 MG QD ORAL), (20 MG QD ORAL), (30 MG QD ORAL), (35 MG QD ORAL)
     Route: 048
     Dates: start: 20120518, end: 20120520
  6. FLAGYL [Suspect]
     Indication: LUNG DISORDER
     Dosage: (500 MG TID ORAL)
     Route: 048
     Dates: start: 20120509, end: 20120519
  7. LOVENOX [Suspect]
     Indication: ATRIAL FIBRILLATION
     Dosage: (0.6 ML BID SUBCUTANEOUS)
     Route: 058
     Dates: start: 20120509, end: 20120520
  8. DIGOXIN [Concomitant]
  9. LASIX [Concomitant]
  10. CEFTRIAXONE [Suspect]
     Indication: LUNG DISORDER
     Dosage: (2 G QD INTRAVENOUS (NOT OTHERWISE SPECIFIED))
     Route: 042
     Dates: start: 20120509, end: 20120517
  11. DOMPERIDONE [Concomitant]
  12. ESCITALOPRAM [Concomitant]
  13. OMEPRAZOLE [Concomitant]
  14. TIORFAN [Concomitant]
  15. ACETAMINOPHEN [Concomitant]
  16. DEPAXINE CHRONO [Concomitant]
  17. SPASFON /00765801/ [Concomitant]
  18. ATORVASTATIN [Concomitant]
  19. TENORMIN [Concomitant]

REACTIONS (10)
  - ACTIVATED PARTIAL THROMBOPLASTIN TIME PROLONGED [None]
  - HAEMATOMA [None]
  - C-REACTIVE PROTEIN INCREASED [None]
  - OEDEMA PERIPHERAL [None]
  - BRAIN NATRIURETIC PEPTIDE INCREASED [None]
  - THROMBOCYTOPENIA [None]
  - DIARRHOEA [None]
  - VOMITING [None]
  - ABDOMINAL PAIN UPPER [None]
  - DRUG INTERACTION [None]
